FAERS Safety Report 17794153 (Version 1)
Quarter: 2020Q2

REPORT INFORMATION
  Report Type: Spontaneous
  Country: CN (occurrence: CN)
  Receive Date: 20200515
  Receipt Date: 20200515
  Transmission Date: 20200714
  Serious: Yes (Other)
  Sender: FDA-Public Use
  Company Number: NVSC2020CN132045

PATIENT

DRUGS (9)
  1. MYCOPHENOLATE MOFETIL. [Suspect]
     Active Substance: MYCOPHENOLATE MOFETIL
     Dosage: 1-1.5 G, QD (MAINTENANCE PHASE)
     Route: 048
  2. PREDNISONE. [Suspect]
     Active Substance: PREDNISONE
     Dosage: 10 MG, QD (THE MEAN DOSE AT THE END OF INDUCTION TREATMENT WAS 10 (5?15) MG/DAY)
     Route: 065
  3. MYCOPHENOLATE MOFETIL. [Suspect]
     Active Substance: MYCOPHENOLATE MOFETIL
     Indication: TAKAYASU^S ARTERITIS
     Dosage: 1-2 G, QD (INDUCTION PHASE)
     Route: 048
  4. AZATHIOPRINE. [Suspect]
     Active Substance: AZATHIOPRINE
     Indication: TAKAYASU^S ARTERITIS
     Dosage: 25-50 MG, QD (INDUCTION PHASE AND MAINTENANCE PHASE)
     Route: 048
  5. LEFLUNOMIDE. [Suspect]
     Active Substance: LEFLUNOMIDE
     Indication: TAKAYASU^S ARTERITIS
     Dosage: 25-50 MG, QD (INDUCTION AND MAINTENACE PHASE)
     Route: 048
  6. PREDNISONE. [Suspect]
     Active Substance: PREDNISONE
     Indication: TAKAYASU^S ARTERITIS
     Dosage: 0.8-1.0 MG/KG, QD (STARTING DOSE, INDUCTION PHASE)
     Route: 048
  7. PREDNISONE. [Suspect]
     Active Substance: PREDNISONE
     Dosage: 0.1-0.2 MG/KG, QD ( AFTER 4 WEEKS, THE DOSE WAS TAPERED GRADUALLY OVER 5 MONTHS TO A MAINTENANCE DOS
     Route: 048
  8. METHOTREXATE. [Suspect]
     Active Substance: METHOTREXATE
     Indication: TAKAYASU^S ARTERITIS
     Dosage: 10-15 MG, QW (INDUCTION AND MAINTENANCE PHASE)
     Route: 048
  9. CYCLOPHOSPHAMIDE. [Suspect]
     Active Substance: CYCLOPHOSPHAMIDE
     Indication: TAKAYASU^S ARTERITIS
     Dosage: 0.5-0.75 G/M2, Q4W (USUALLY 0.8 G, INDUCTION PHASE)
     Route: 042

REACTIONS (2)
  - Takayasu^s arteritis [Unknown]
  - Product use in unapproved indication [Unknown]
